FAERS Safety Report 8791552 (Version 2)
Quarter: 2012Q4

REPORT INFORMATION
  Report Type: Spontaneous
  Country: FR (occurrence: None)
  Receive Date: 20120913
  Receipt Date: 20120920
  Transmission Date: 20130627
  Serious: Yes (Death)
  Sender: FDA-Public Use
  Company Number: 1406439

PATIENT

DRUGS (5)
  1. IRINOTECAN HYDROCHLORIDE [Suspect]
     Indication: ADENOCARCINOMA
     Route: 042
  2. FLUOROURACIL [Suspect]
     Indication: ADENOCARCINOMA
     Route: 040
  3. LEUCOVORIN [Suspect]
     Indication: ADENOCARCINOMA
  4. GRANISETRON [Concomitant]
  5. METHYLPREDNISOLONE [Concomitant]

REACTIONS (6)
  - Diarrhoea [None]
  - Metastases to central nervous system [None]
  - Concomitant disease progression [None]
  - Dehydration [None]
  - Confusional state [None]
  - Toxicity to various agents [None]
